FAERS Safety Report 9668848 (Version 2)
Quarter: 2013Q4

REPORT INFORMATION
  Report Type: Spontaneous
  Country: CN (occurrence: CN)
  Receive Date: 20131105
  Receipt Date: 20131105
  Transmission Date: 20140711
  Serious: Yes (Other)
  Sender: FDA-Public Use
  Company Number: PHHY2012CN069176

PATIENT
  Age: 1 Year
  Sex: 0
  Weight: 1 kg

DRUGS (5)
  1. DIOVAN [Suspect]
     Indication: CARDIAC FAILURE
     Dosage: 80 MG, QD
     Route: 048
     Dates: start: 20090101, end: 20120820
  2. DIOVAN [Suspect]
     Indication: INFARCTION
  3. DIOVAN [Suspect]
     Indication: DIABETES MELLITUS
  4. ANGIOTENSIN II ANTAGONISTS [Suspect]
  5. PLENDIL [Concomitant]

REACTIONS (4)
  - Dysarthria [Unknown]
  - Laryngeal oedema [Unknown]
  - Dysphonia [Not Recovered/Not Resolved]
  - Drug administered to patient of inappropriate age [Unknown]
